FAERS Safety Report 4277117-8 (Version None)
Quarter: 2004Q1

REPORT INFORMATION
  Report Type: 
  Country: None (occurrence: None)
  Receive Date: 20040120
  Receipt Date: 20040116
  Transmission Date: 20041129
  Serious: Yes (Death)
  Sender: FDA-Public Use
  Company Number: 2004-111686-NL

PATIENT
  Age: 60 Year
  Sex: Male

DRUGS (3)
  1. MIRTAZAPINE [Suspect]
     Indication: DEPRESSION
     Dosage: 30 MG
     Route: 048
     Dates: start: 20030524, end: 20030622
  2. ZOLPIDEM TARTRATE [Concomitant]
  3. CLOTIAPINE [Concomitant]

REACTIONS (1)
  - COMPLETED SUICIDE [None]
